FAERS Safety Report 21014019 (Version 2)
Quarter: 2022Q3

REPORT INFORMATION
  Report Type: Spontaneous
  Country: US (occurrence: US)
  Receive Date: 20220627
  Receipt Date: 20220911
  Transmission Date: 20221026
  Serious: No
  Sender: FDA-Public Use
  Company Number: US-SA-SAC20220624000309

PATIENT
  Age: 37 Year
  Sex: Male

DRUGS (1)
  1. DUPIXENT [Suspect]
     Active Substance: DUPILUMAB
     Indication: Dermatitis atopic
     Dosage: 300 MG, QOW
     Route: 058
     Dates: start: 20201125

REACTIONS (4)
  - Eczema eyelids [Not Recovered/Not Resolved]
  - Mental disorder [Not Recovered/Not Resolved]
  - Ocular hyperaemia [Unknown]
  - Erythema [Unknown]

NARRATIVE: CASE EVENT DATE: 20220101
